FAERS Safety Report 13750293 (Version 1)
Quarter: 2017Q3

REPORT INFORMATION
  Report Type: Spontaneous
  Country: GB (occurrence: ES)
  Receive Date: 20170713
  Receipt Date: 20170713
  Transmission Date: 20171127
  Serious: Yes (Death)
  Sender: FDA-Public Use
  Company Number: GB-PFIZER INC-2017302325

PATIENT
  Age: 40 Year
  Sex: Male

DRUGS (6)
  1. MIRTAZAPINE. [Suspect]
     Active Substance: MIRTAZAPINE
  2. CLONAZEPAM. [Suspect]
     Active Substance: CLONAZEPAM
  3. MORPHINE [Suspect]
     Active Substance: MORPHINE
  4. ALPRAZOLAM. [Suspect]
     Active Substance: ALPRAZOLAM
  5. PREGABALIN. [Suspect]
     Active Substance: PREGABALIN
  6. LEVOMEPROMAZINE [Suspect]
     Active Substance: LEVOMEPROMAZINE

REACTIONS (2)
  - Drug abuse [Fatal]
  - Pulmonary haemorrhage [Fatal]
